FAERS Safety Report 16881165 (Version 1)
Quarter: 2019Q4

REPORT INFORMATION
  Report Type: Spontaneous
  Country: US (occurrence: US)
  Receive Date: 20190807
  Receipt Date: 20190807
  Transmission Date: 20200122
  Serious: Yes (Death)
  Sender: FDA-Public Use
  Company Number: None

PATIENT
  Age: 65 Year
  Sex: Male

DRUGS (10)
  1. ALBUTEROL (PROVENTIL HFA, VENTOLIN HFA, PROAIR HFA) [Concomitant]
  2. FLUTICASONE-SALMETEROL (AIRDUO RESPICLICK) [Concomitant]
  3. PROORANOLOL (INDERAL) [Concomitant]
  4. NAPROXEN SODIUM (ALEVE) [Concomitant]
  5. LIPITOR [Concomitant]
     Active Substance: ATORVASTATIN CALCIUM
  6. KEYTRUDA [Suspect]
     Active Substance: PEMBROLIZUMAB
     Indication: LUNG NEOPLASM MALIGNANT
     Dosage: ?          QUANTITY:200 MG MILLIGRAM(S);OTHER FREQUENCY:EVERY 21 DAY;?
     Route: 042
     Dates: start: 20190313, end: 20190717
  7. METHIMAZOLE (TAPAZOLE) [Concomitant]
  8. TRAZODONE (DESYREL) [Concomitant]
  9. PEMBROLIZUMAB. [Concomitant]
     Active Substance: PEMBROLIZUMAB
  10. ALBUTEROL (PROAIR HFA) [Concomitant]

REACTIONS (2)
  - Cardiac arrest [None]
  - Haemoptysis [None]

NARRATIVE: CASE EVENT DATE: 20190801
